FAERS Safety Report 7359793-6 (Version None)
Quarter: 2011Q1

REPORT INFORMATION
  Report Type: 
  Country: None (occurrence: None)
  Receive Date: 20110317
  Receipt Date: 20110210
  Transmission Date: 20110831
  Serious: Yes (Hospitalization, Other)
  Sender: FDA-Public Use
  Company Number: US-BAYER-2010-003077

PATIENT
  Sex: Female
  Weight: 82 kg

DRUGS (20)
  1. AMOXICILLIN [Concomitant]
     Dosage: 500 MG, UNK
     Route: 048
     Dates: start: 20040101
  2. AMOXICILLIN [Concomitant]
     Dosage: 500 MG, UNK
     Route: 048
     Dates: start: 20071101
  3. ZITHROMAX [Concomitant]
     Dosage: 250 MG, UNK
     Route: 048
     Dates: start: 20050601
  4. ZITHROMAX [Concomitant]
     Dosage: 250 MG, UNK
     Dates: start: 20060301
  5. ADDERALL 10 [Concomitant]
     Dosage: 30 MG, UNK
     Dates: start: 20030101
  6. YASMIN [Suspect]
     Indication: ORAL CONTRACEPTION
     Dosage: UNK
     Route: 048
  7. CELEXA [Concomitant]
     Dosage: 40 MG, UNK
     Dates: start: 20030101, end: 20051101
  8. AMOXICILLIN [Concomitant]
     Dosage: 500 MG, UNK
     Route: 048
     Dates: start: 20060801
  9. PROTONIX [Concomitant]
     Dosage: 40 MG, UNK
     Dates: start: 20050101
  10. TETRACYCLINE [Concomitant]
     Dosage: 500 MG, UNK
     Route: 048
     Dates: start: 20070801
  11. CIPROFLOXACIN [Concomitant]
     Dosage: 500 MG, UNK
     Route: 048
     Dates: start: 20080801
  12. MACROBID [Concomitant]
     Dosage: 100 MG, UNK
     Route: 048
     Dates: start: 20040201
  13. AMOXICILLIN [Concomitant]
     Dosage: 500 MG, UNK
     Route: 048
     Dates: start: 20050601
  14. YAZ [Suspect]
     Dosage: UNK
     Dates: start: 20071001, end: 20090101
  15. AMOXICILLIN [Concomitant]
     Dosage: 500 MG, UNK
     Route: 048
     Dates: start: 20040601
  16. ZOLOFT [Concomitant]
     Dosage: 100 MG, UNK
     Dates: start: 20030101
  17. AMOXICILLIN [Concomitant]
     Dosage: 500 MG, UNK
     Route: 048
     Dates: start: 20061201
  18. METRONIDAZOLE [Concomitant]
     Dosage: 250 MG, UNK
     Route: 048
     Dates: start: 20070801
  19. ALBUTEROL [Concomitant]
     Dosage: UNK
     Route: 055
     Dates: start: 20040301
  20. LESSINA [Concomitant]
     Dosage: 40 MG, UNK
     Route: 048
     Dates: start: 20050301, end: 20070801

REACTIONS (5)
  - CHOLECYSTITIS CHRONIC [None]
  - CHOLECYSTECTOMY [None]
  - CHOLELITHIASIS [None]
  - DEPRESSION [None]
  - ANXIETY [None]
